FAERS Safety Report 9812817 (Version 1)
Quarter: 2014Q1

REPORT INFORMATION
  Report Type: Spontaneous
  Country: US (occurrence: None)
  Receive Date: 20140109
  Receipt Date: 20140109
  Transmission Date: 20141002
  Serious: No
  Sender: FDA-Public Use
  Company Number: None

PATIENT
  Age: 26 Year
  Sex: Female
  Weight: 102.06 kg

DRUGS (1)
  1. BUPRENORPHINE [Suspect]
     Indication: PAIN
     Dosage: TAKEN UNDER THE TONGUE
     Dates: start: 20130221, end: 20130322

REACTIONS (2)
  - Blister [None]
  - Road traffic accident [None]
